FAERS Safety Report 21077233 (Version 1)
Quarter: 2022Q3

REPORT INFORMATION
  Report Type: Spontaneous
  Country: US (occurrence: None)
  Receive Date: 20220713
  Receipt Date: 20220713
  Transmission Date: 20221026
  Serious: Yes (Hospitalization)
  Sender: FDA-Public Use
  Company Number: None

PATIENT
  Age: 78 Year
  Sex: Male

DRUGS (1)
  1. CAPECITABINE [Suspect]
     Active Substance: CAPECITABINE
     Dosage: FREQUENCY : TWICE A DAY;?
     Route: 048
     Dates: start: 202001

REACTIONS (8)
  - Arrhythmia [None]
  - Asthenia [None]
  - Rectal haemorrhage [None]
  - Therapy interrupted [None]
  - Insomnia [None]
  - Eating disorder [None]
  - Pelvic abscess [None]
  - Neuropathy peripheral [None]

NARRATIVE: CASE EVENT DATE: 20220623
